FAERS Safety Report 24696843 (Version 3)
Quarter: 2025Q1

REPORT INFORMATION
  Report Type: Report from Study
  Country: US (occurrence: US)
  Receive Date: 20241204
  Receipt Date: 20250102
  Transmission Date: 20250409
  Serious: Yes (Hospitalization)
  Sender: PFIZER
  Company Number: US-PFIZER INC-PV202400155225

PATIENT
  Age: 50 Year
  Sex: Female
  Weight: 69 kg

DRUGS (14)
  1. RAPAMUNE [Suspect]
     Active Substance: SIROLIMUS
     Indication: Immunosuppression
     Dosage: 2 MG, QD
     Route: 048
     Dates: start: 20241005, end: 20241017
  2. RAPAMUNE [Suspect]
     Active Substance: SIROLIMUS
     Dosage: 3 MG, QD
     Route: 048
     Dates: start: 20241018
  3. RITUXIMAB [Suspect]
     Active Substance: RITUXIMAB
     Indication: Immunosuppression
     Route: 042
     Dates: start: 20240919, end: 20240919
  4. RITUXIMAB [Suspect]
     Active Substance: RITUXIMAB
     Route: 042
     Dates: start: 20241004, end: 20241004
  5. DEXAMETHASONE [Suspect]
     Active Substance: DEXAMETHASONE
     Indication: Immunosuppression
     Dosage: 4 MG, BID
     Route: 048
     Dates: start: 20241009, end: 20241106
  6. DEXAMETHASONE [Suspect]
     Active Substance: DEXAMETHASONE
     Dosage: 4 MG, QD
     Route: 048
     Dates: start: 20241107, end: 20241113
  7. DEXAMETHASONE [Suspect]
     Active Substance: DEXAMETHASONE
     Dosage: 2 MG, BID
     Route: 048
     Dates: start: 20241114
  8. INVESTIGATIONAL PRODUCT [Suspect]
     Active Substance: INVESTIGATIONAL PRODUCT
     Dates: start: 20241008
  9. CITALOPRAM [Concomitant]
     Active Substance: CITALOPRAM
     Dates: start: 20210625
  10. PANTOPRAZOLE [Concomitant]
     Active Substance: PANTOPRAZOLE
     Dates: start: 2016
  11. CETIRIZINE [Concomitant]
     Active Substance: CETIRIZINE HYDROCHLORIDE
     Dates: start: 1980
  12. HYDROXYZINE [Concomitant]
     Active Substance: HYDROXYZINE HYDROCHLORIDE
     Dates: start: 2003
  13. DIAZEPAM [Concomitant]
     Active Substance: DIAZEPAM
     Dates: start: 20240917
  14. SENNOSIDES [Concomitant]
     Active Substance: SENNOSIDES
     Dates: start: 20241013

REACTIONS (4)
  - Soft tissue infection [Recovered/Resolved]
  - Condition aggravated [Recovered/Resolved]
  - Soft tissue infection [Not Recovered/Not Resolved]
  - Disease recurrence [Not Recovered/Not Resolved]

NARRATIVE: CASE EVENT DATE: 20241108
